FAERS Safety Report 5307702-3 (Version None)
Quarter: 2007Q2

REPORT INFORMATION
  Report Type: 
  Country: None (occurrence: None)
  Receive Date: 20070419
  Receipt Date: 20070404
  Transmission Date: 20071010
  Serious: Yes (Other)
  Sender: FDA-Public Use
  Company Number: 07-000747

PATIENT
  Age: 37 Year
  Sex: Female
  Weight: 63.5 kg

DRUGS (3)
  1. LOESTRIN 24 FE [Suspect]
     Indication: CONTRACEPTION
     Dosage: 20/1000 UG, QD, ORAL
     Route: 048
     Dates: start: 20061105, end: 20070101
  2. LOESTRIN 24 FE [Suspect]
     Indication: MENSTRUATION IRREGULAR
     Dosage: 20/1000 UG, QD, ORAL
     Route: 048
     Dates: start: 20061105, end: 20070101
  3. LEVOTHYROXINE SODIUM [Concomitant]

REACTIONS (7)
  - ABORTION SPONTANEOUS [None]
  - AMENORRHOEA [None]
  - DRUG EXPOSURE DURING PREGNANCY [None]
  - DRUG INEFFECTIVE [None]
  - METRORRHAGIA [None]
  - PREGNANCY ON ORAL CONTRACEPTIVE [None]
  - VAGINAL HAEMORRHAGE [None]
